FAERS Safety Report 5276415-9 (Version None)
Quarter: 2007Q1

REPORT INFORMATION
  Report Type: 
  Country: None (occurrence: None)
  Receive Date: 20061213
  Receipt Date: 20031024
  Transmission Date: 20070707
  Serious: Yes (Other)
  Sender: FDA-Public Use
  Company Number: 2003UW12724

PATIENT
  Age: 16 Year
  Sex: Female
  Weight: 49.8957 kg

DRUGS (1)
  1. SEROQUEL [Suspect]
     Dosage: 300 MG HS PO
     Route: 048
     Dates: start: 20030801, end: 20030801

REACTIONS (7)
  - ABDOMINAL PAIN [None]
  - CONSTIPATION [None]
  - DIZZINESS [None]
  - FAECALOMA [None]
  - HEPATIC ENZYME INCREASED [None]
  - HEPATIC PAIN [None]
  - MEDICATION ERROR [None]
